FAERS Safety Report 24300057 (Version 3)
Quarter: 2024Q3

REPORT INFORMATION
  Report Type: Report from Study
  Country: US (occurrence: US)
  Receive Date: 20240909
  Receipt Date: 20240918
  Transmission Date: 20241017
  Serious: Yes (Other)
  Sender: JAZZ
  Company Number: US-JAZZ PHARMACEUTICALS-2024-US-014275

PATIENT
  Age: 17 Year
  Sex: Male
  Weight: 181 kg

DRUGS (1)
  1. XYWAV [Suspect]
     Active Substance: CALCIUM OXYBATE\MAGNESIUM OXYBATE\POTASSIUM OXYBATE\SODIUM OXYBATE
     Indication: Narcolepsy
     Dosage: 4.5 GRAM, BID
     Dates: start: 20240422

REACTIONS (4)
  - Accident [Unknown]
  - Limb crushing injury [Unknown]
  - Joint dislocation [Unknown]
  - Foot fracture [Unknown]

NARRATIVE: CASE EVENT DATE: 20240903
